FAERS Safety Report 4473612-7 (Version None)
Quarter: 2004Q4

REPORT INFORMATION
  Report Type: 
  Country: None (occurrence: None)
  Receive Date: 20040909
  Receipt Date: 20040702
  Transmission Date: 20050328
  Serious: Yes (Hospitalization)
  Sender: FDA-Public Use
  Company Number: F03200400081

PATIENT
  Age: 64 Year
  Sex: Male
  Weight: 78.4723 kg

DRUGS (18)
  1. ELOXATIN [Suspect]
     Indication: GASTROINTESTINAL CANCER METASTATIC
     Dosage: 260 MG Q3W - INTRAVENOUS NOS
     Route: 042
     Dates: start: 20040609, end: 20040609
  2. ELOXATIN [Suspect]
     Indication: GASTROOESOPHAGEAL CANCER
     Dosage: 260 MG Q3W - INTRAVENOUS NOS
     Route: 042
     Dates: start: 20040609, end: 20040609
  3. TAXOTERE [Suspect]
     Indication: GASTROINTESTINAL CANCER METASTATIC
     Dosage: 120 MG Q3W - INTRAVENOUS NOS
     Route: 042
     Dates: start: 20040609, end: 20040609
  4. TAXOTERE [Suspect]
     Indication: GASTROOESOPHAGEAL CANCER
     Dosage: 120 MG Q3W - INTRAVENOUS NOS
     Route: 042
     Dates: start: 20040609, end: 20040609
  5. SUCRALFATE [Concomitant]
  6. DEXTRIFERRON [Concomitant]
  7. VITAMIN B COMPLEX CAP [Concomitant]
  8. VITAMIN C [Concomitant]
  9. MULTI-VITAMINS [Concomitant]
  10. SAW PALMETTO [Concomitant]
  11. GINKGO BILOBA [Concomitant]
  12. GINSENG [Concomitant]
  13. SILDENAFIL CITRATE [Concomitant]
  14. FLUTICASONE PROPIONATE [Concomitant]
  15. SPRAY [Concomitant]
  16. CETIRIZINE HCL [Concomitant]
  17. LOPERAMIDE HYDROCHLORIDE [Concomitant]
  18. PROCHLORPERAZINE EDISYLATE [Concomitant]

REACTIONS (1)
  - SEPSIS [None]
